FAERS Safety Report 15353115 (Version 3)
Quarter: 2018Q4

REPORT INFORMATION
  Report Type: Report from Study
  Country: US (occurrence: US)
  Receive Date: 20180905
  Receipt Date: 20181008
  Transmission Date: 20190204
  Serious: Yes (Hospitalization, Other)
  Sender: FDA-Public Use
  Company Number: US-ACTELION-A-NJ2018-178193

PATIENT
  Age: 80 Year
  Sex: Female
  Weight: 88.44 kg

DRUGS (2)
  1. OPSUMIT [Suspect]
     Active Substance: MACITENTAN
     Indication: PULMONARY ARTERIAL HYPERTENSION
     Dosage: 10 MG, QD
     Route: 048
  2. WARFARIN [Concomitant]
     Active Substance: WARFARIN

REACTIONS (13)
  - Condition aggravated [Unknown]
  - Syncope [Unknown]
  - Dehydration [Unknown]
  - Urinary tract infection [Unknown]
  - Oedema [Unknown]
  - Dizziness [Unknown]
  - Hospice care [Unknown]
  - Dyspnoea [Recovering/Resolving]
  - Dyspnoea exertional [Not Recovered/Not Resolved]
  - Renal failure [Unknown]
  - Atrial fibrillation [Unknown]
  - Pulmonary sarcoidosis [Unknown]
  - Diabetes mellitus [Unknown]

NARRATIVE: CASE EVENT DATE: 20180810
